FAERS Safety Report 7465081-X (Version None)
Quarter: 2011Q2

REPORT INFORMATION
  Report Type: 
  Country: None (occurrence: None)
  Receive Date: 20110505
  Receipt Date: 20110505
  Transmission Date: 20111010
  Serious: Yes (Other)
  Sender: FDA-Public Use
  Company Number: None

PATIENT
  Age: 46 Year
  Sex: Female
  Weight: 68.4932 kg

DRUGS (3)
  1. SINGULAIR [Suspect]
     Indication: SEASONAL ALLERGY
     Dosage: 1 TABLET DAILY PO
     Route: 048
     Dates: start: 20110430, end: 20110503
  2. SYNTHROID [Concomitant]
  3. MIRENA [Concomitant]

REACTIONS (3)
  - ANXIETY [None]
  - SLEEP TERROR [None]
  - INSOMNIA [None]
